FAERS Safety Report 4973043-7 (Version None)
Quarter: 2006Q2

REPORT INFORMATION
  Report Type: 
  Country: None (occurrence: None)
  Receive Date: 20060414
  Receipt Date: 20060412
  Transmission Date: 20061013
  Serious: Yes (Other)
  Sender: FDA-Public Use
  Company Number: US-JNJFOC-20060403055

PATIENT
  Age: 33 Year
  Sex: Female
  Weight: 98.43 kg

DRUGS (1)
  1. ELMIRON [Suspect]
     Indication: DRUG USE FOR UNKNOWN INDICATION
     Route: 048

REACTIONS (5)
  - DISORIENTATION [None]
  - PRURITUS [None]
  - SKIN WARM [None]
  - TREMOR [None]
  - URINARY TRACT INFECTION [None]
